FAERS Safety Report 19089988 (Version 1)
Quarter: 2021Q2

REPORT INFORMATION
  Report Type: Spontaneous
  Country: FR (occurrence: FR)
  Receive Date: 20210404
  Receipt Date: 20210404
  Transmission Date: 20210717
  Serious: Yes (Other)
  Sender: FDA-Public Use
  Company Number: FR-JNJFOC-20210346057

PATIENT
  Age: 71 Year
  Sex: Male
  Weight: 49 kg

DRUGS (14)
  1. SERESTA [Concomitant]
     Active Substance: OXAZEPAM
  2. CETIRIZINE [Concomitant]
     Active Substance: CETIRIZINE HYDROCHLORIDE
  3. DIFFU K [Concomitant]
     Active Substance: POTASSIUM CHLORIDE
  4. CALCIDOSE VITAMINE D [Concomitant]
     Active Substance: CALCIUM\CHOLECALCIFEROL
  5. PANTOPRAZOLE [Concomitant]
     Active Substance: PANTOPRAZOLE
  6. LEVOTHYROX [Concomitant]
     Active Substance: LEVOTHYROXINE
  7. PROCORALAN [Concomitant]
     Active Substance: IVABRADINE
  8. SEEBRI BREEZHALER [Concomitant]
     Active Substance: GLYCOPYRROLATE
  9. RIVAROXABAN [Suspect]
     Active Substance: RIVAROXABAN
     Indication: THROMBOSIS PROPHYLAXIS
     Route: 048
     Dates: end: 20210204
  10. FUROSEMIDE. [Concomitant]
     Active Substance: FUROSEMIDE
     Dosage: UNK
  11. LANSOYL [Concomitant]
     Active Substance: MINERAL OIL
  12. PERINDOPRIL [Suspect]
     Active Substance: PERINDOPRIL
     Indication: HYPERTENSION
     Dosage: 4 MG, QD
     Route: 048
  13. CORDARONE [Concomitant]
     Active Substance: AMIODARONE HYDROCHLORIDE
  14. ATORVASTATIN [Concomitant]
     Active Substance: ATORVASTATIN

REACTIONS (2)
  - Haematoma [Recovering/Resolving]
  - Fall [Recovered/Resolved with Sequelae]

NARRATIVE: CASE EVENT DATE: 20210203
